FAERS Safety Report 7613166-7 (Version None)
Quarter: 2011Q3

REPORT INFORMATION
  Report Type: 
  Country: None (occurrence: None)
  Receive Date: 20110708
  Receipt Date: 20110627
  Transmission Date: 20111222
  Serious: Yes (Death)
  Sender: FDA-Public Use
  Company Number: MPS1-1000530

PATIENT
  Age: 13 Year
  Sex: Female

DRUGS (5)
  1. ALDURAZYME [Suspect]
     Indication: MUCOPOLYSACCHARIDOSIS I
     Dosage: IV DRIP
     Route: 041
     Dates: start: 20040427, end: 20100709
  2. RIVOTRIL (CLONAZEPM) [Concomitant]
  3. MIDAZOLAM HCL [Concomitant]
  4. TRAMAL (TRAMADOL HYDROCHLORIDE) [Concomitant]
  5. OXYCODONE HCL [Concomitant]

REACTIONS (1)
  - CARDIOPULMONARY FAILURE [None]
